FAERS Safety Report 6375786-X (Version None)
Quarter: 2009Q3

REPORT INFORMATION
  Report Type: 
  Country: None (occurrence: None)
  Receive Date: 20090921
  Receipt Date: 20090908
  Transmission Date: 20100115
  Serious: No
  Sender: FDA-Public Use
  Company Number: 2009000321

PATIENT
  Sex: Male

DRUGS (2)
  1. FENTORA [Suspect]
     Indication: NEPHROLITHIASIS
     Dosage: (400 MCG,TID AS NEEDED),BU
     Route: 002
     Dates: start: 20080601
  2. MORPHINE [Concomitant]

REACTIONS (3)
  - DRUG PRESCRIBING ERROR [None]
  - INAPPROPRIATE SCHEDULE OF DRUG ADMINISTRATION [None]
  - WRONG TECHNIQUE IN DRUG USAGE PROCESS [None]
